FAERS Safety Report 10233395 (Version 1)
Quarter: 2014Q2

REPORT INFORMATION
  Report Type: Other
  Country: US (occurrence: US)
  Receive Date: 20140612
  Receipt Date: 20140612
  Transmission Date: 20141212
  Serious: Yes (Death)
  Sender: FDA-Public Use
  Company Number: US-FRI-1000068101

PATIENT
  Sex: 0

DRUGS (1)
  1. CEFTAROLINE FOSAMIL [Suspect]
     Indication: PNEUMONIA STAPHYLOCOCCAL

REACTIONS (1)
  - Death [Fatal]
